FAERS Safety Report 10345839 (Version 2)
Quarter: 2014Q3

REPORT INFORMATION
  Report Type: Spontaneous
  Country: US (occurrence: None)
  Receive Date: 20140723
  Receipt Date: 20140804
  Transmission Date: 20150326
  Serious: Yes (Hospitalization, Other)
  Sender: FDA-Public Use
  Company Number: 2014-US-007640

PATIENT
  Age: 34 Year
  Sex: Female

DRUGS (3)
  1. XYREM [Suspect]
     Active Substance: SODIUM OXYBATE
     Indication: NARCOLEPSY
     Route: 048
     Dates: start: 201405, end: 2014
  2. XYREM [Suspect]
     Active Substance: SODIUM OXYBATE
     Indication: CATAPLEXY
     Route: 048
     Dates: start: 201405, end: 2014
  3. BACTRIM [Suspect]
     Active Substance: SULFAMETHOXAZOLE\TRIMETHOPRIM
     Indication: PRODUCT USED FOR UNKNOWN INDICATION
     Dosage: UNKNOWN DOSE

REACTIONS (13)
  - Uterine leiomyoma [None]
  - Dizziness [None]
  - Electrocardiogram abnormal [None]
  - Condition aggravated [None]
  - Dysgeusia [None]
  - Pain [None]
  - Dry mouth [None]
  - Oral candidiasis [None]
  - Drug hypersensitivity [None]
  - Tachycardia [None]
  - Irritable bowel syndrome [None]
  - Hypersensitivity [None]
  - Herpes zoster [None]

NARRATIVE: CASE EVENT DATE: 201405
